FAERS Safety Report 5444108-0 (Version None)
Quarter: 2007Q3

REPORT INFORMATION
  Report Type: 
  Country: None (occurrence: None)
  Receive Date: 20070831
  Receipt Date: 20070817
  Transmission Date: 20080115
  Serious: Yes (Death, Hospitalization)
  Sender: FDA-Public Use
  Company Number: S06-CAN-01440-01

PATIENT
  Age: 49 Year
  Sex: Male
  Weight: 98 kg

DRUGS (5)
  1. TIAZAC [Suspect]
     Indication: HYPERTENSION
  2. TIAZAC [Suspect]
     Indication: HYPERTENSION
  3. ACTOS [Concomitant]
  4. METFORMIN HCL [Concomitant]
  5. ASPIRIN [Concomitant]

REACTIONS (5)
  - DYSPNOEA [None]
  - FATIGUE [None]
  - MYOCARDIAL ISCHAEMIA [None]
  - OEDEMA PERIPHERAL [None]
  - ORTHOPNOEA [None]
